FAERS Safety Report 8943486 (Version 1)
Quarter: 2012Q4

REPORT INFORMATION
  Report Type: 
  Country: IT (occurrence: IT)
  Receive Date: 20121203
  Receipt Date: 20121203
  Transmission Date: 20130627
  Serious: Yes (Hospitalization)
  Sender: FDA-Public Use
  Company Number: PHHY2012IT109699

PATIENT
  Sex: Male

DRUGS (2)
  1. NIMESULIDE [Suspect]
  2. AMOXICILLIN+CLAVULANATE [Suspect]

REACTIONS (4)
  - Chromaturia [Unknown]
  - Erythema [Unknown]
  - Nephropathy [Unknown]
  - Oliguria [Unknown]
